FAERS Safety Report 12561632 (Version 1)
Quarter: 2016Q3

REPORT INFORMATION
  Report Type: Spontaneous
  Country: US (occurrence: US)
  Receive Date: 20160715
  Receipt Date: 20160715
  Transmission Date: 20161109
  Serious: No
  Sender: FDA-Public Use
  Company Number: US-IGSA-GTI003534

PATIENT
  Age: 36 Year
  Sex: Male
  Weight: 145 kg

DRUGS (5)
  1. BENADRYL [Concomitant]
     Active Substance: DIPHENHYDRAMINE HYDROCHLORIDE
     Indication: PREMEDICATION
  2. TYLENOL [Concomitant]
     Active Substance: ACETAMINOPHEN
  3. GAMUNEX-C [Suspect]
     Active Substance: HUMAN IMMUNOGLOBULIN G
     Indication: POLYNEUROPATHY IDIOPATHIC PROGRESSIVE
     Route: 042
     Dates: start: 20150727, end: 20150731
  4. NORVASC [Concomitant]
     Active Substance: AMLODIPINE BESYLATE
     Indication: BLOOD PRESSURE MEASUREMENT
  5. LISINOPRIL. [Concomitant]
     Active Substance: LISINOPRIL
     Indication: ADVERSE DRUG REACTION

REACTIONS (7)
  - Migraine [Recovering/Resolving]
  - Blood pressure increased [Recovered/Resolved]
  - Peripheral vascular disorder [Recovered/Resolved]
  - Photophobia [Recovered/Resolved]
  - Haemolytic anaemia [Recovered/Resolved]
  - Blood pressure increased [Not Recovered/Not Resolved]
  - Arthralgia [Not Recovered/Not Resolved]

NARRATIVE: CASE EVENT DATE: 20150729
